FAERS Safety Report 15767858 (Version 4)
Quarter: 2022Q2

REPORT INFORMATION
  Report Type: Spontaneous
  Country: GR (occurrence: GR)
  Receive Date: 20181227
  Receipt Date: 20220425
  Transmission Date: 20220721
  Serious: Yes (Other)
  Sender: FDA-Public Use
  Company Number: GR-MYLANLABS-2018M1095731

PATIENT
  Age: 70 Year
  Sex: Male

DRUGS (4)
  1. NOVANTRONE [Suspect]
     Active Substance: MITOXANTRONE HYDROCHLORIDE
     Indication: Acute myeloid leukaemia
     Dosage: UNK
     Dates: start: 201703
  2. NOVANTRONE [Suspect]
     Active Substance: MITOXANTRONE HYDROCHLORIDE
     Dosage: UNK
     Dates: start: 201705
  3. CYTARABINE [Suspect]
     Active Substance: CYTARABINE
     Indication: Acute myeloid leukaemia
     Dosage: UNK, INTERMITTENT DOSES
     Dates: start: 201703
  4. CYTARABINE [Suspect]
     Active Substance: CYTARABINE
     Dosage: UNK
     Dates: start: 201705

REACTIONS (6)
  - Malignant melanoma [Unknown]
  - Rectal lesion [Unknown]
  - Haemorrhagic disorder [Unknown]
  - Respiratory tract infection fungal [Unknown]
  - Second primary malignancy [Unknown]
  - Drug ineffective [Recovering/Resolving]
